FAERS Safety Report 21723991 (Version 1)
Quarter: 2022Q4

REPORT INFORMATION
  Report Type: Spontaneous
  Country: US (occurrence: US)
  Receive Date: 20221213
  Receipt Date: 20221213
  Transmission Date: 20230113
  Serious: Yes (Other)
  Sender: FDA-Public Use
  Company Number: US-OTSUKA-2022_053353

PATIENT
  Age: 59 Year
  Sex: Female

DRUGS (1)
  1. IOHEXOL [Suspect]
     Active Substance: IOHEXOL
     Indication: Product used for unknown indication
     Dosage: 150 ML
     Route: 065

REACTIONS (3)
  - Acute kidney injury [Unknown]
  - Respiratory distress [Unknown]
  - Mental status changes [Unknown]
